FAERS Safety Report 7372496-7 (Version None)
Quarter: 2011Q1

REPORT INFORMATION
  Report Type: 
  Country: None (occurrence: None)
  Receive Date: 20110324
  Receipt Date: 20110318
  Transmission Date: 20110831
  Serious: Yes (Death, Life-Threatening)
  Sender: FDA-Public Use
  Company Number: CZ-CELGENEUS-217-C5013-11021593

PATIENT
  Age: 77 Year
  Sex: Female

DRUGS (20)
  1. HELICID [Concomitant]
     Indication: PROPHYLAXIS
     Route: 048
     Dates: start: 20050501
  2. EUPHYLLIN [Concomitant]
     Route: 048
  3. ARANESP [Concomitant]
     Indication: ANAEMIA
     Route: 058
     Dates: start: 20091224
  4. STILNOX [Concomitant]
     Indication: INSOMNIA
     Route: 048
     Dates: start: 20080929
  5. BETALOC [Concomitant]
     Route: 048
     Dates: start: 20040101
  6. NEUPOGEN [Concomitant]
     Indication: NEUTROPENIA
     Route: 058
     Dates: start: 20081201
  7. LOREM [Concomitant]
     Route: 048
     Dates: start: 20080910
  8. PREDNISONE [Suspect]
     Indication: MULTIPLE MYELOMA
     Route: 065
     Dates: start: 20080709, end: 20090221
  9. GODASAL [Concomitant]
     Indication: THROMBOSIS PROPHYLAXIS
     Route: 048
     Dates: start: 20080716
  10. LETROX [Concomitant]
     Indication: HYPOTHYROIDISM
     Route: 048
  11. SERETIDE [Concomitant]
     Route: 055
     Dates: start: 20050101
  12. PANGDOL [Concomitant]
     Indication: CONSTIPATION
     Route: 048
     Dates: start: 20081006
  13. GANATON [Concomitant]
     Indication: CONSTIPATION
     Route: 048
     Dates: start: 20080910
  14. MELPHALAN [Suspect]
     Indication: MULTIPLE MYELOMA
     Route: 065
     Dates: start: 20080709, end: 20090221
  15. PLACEBO FOR CC-5013 [Suspect]
     Indication: MULTIPLE MYELOMA
     Route: 048
     Dates: start: 20080709, end: 20091115
  16. ZOMETA [Concomitant]
     Route: 048
     Dates: start: 20080101, end: 20100217
  17. TRITACE [Concomitant]
     Route: 048
     Dates: start: 20080723
  18. DIGOXIN [Concomitant]
     Route: 048
     Dates: start: 19750101
  19. LENALIDOMIDE [Suspect]
     Indication: MULTIPLE MYELOMA
     Route: 048
     Dates: start: 20091125, end: 20100112
  20. FLONDAN [Concomitant]
     Route: 048
     Dates: start: 20080901

REACTIONS (2)
  - SEPSIS [None]
  - MYELODYSPLASTIC SYNDROME [None]
